FAERS Safety Report 6015510-3 (Version None)
Quarter: 2008Q4

REPORT INFORMATION
  Report Type: 
  Country: None (occurrence: None)
  Receive Date: 20081216
  Receipt Date: 20080919
  Transmission Date: 20090506
  Serious: Yes (Other)
  Sender: FDA-Public Use
  Company Number: US-WYE-H06065208

PATIENT
  Sex: Male

DRUGS (1)
  1. EFFEXOR XR [Suspect]
     Indication: DEPRESSION
     Dosage: 225 MG 1X PER 1 DAY, TRANSPLACENTAL
     Route: 064
     Dates: start: 20070101

REACTIONS (6)
  - DRUG EXPOSURE DURING PREGNANCY [None]
  - DRUG EXPOSURE VIA BREAST MILK [None]
  - DRUG WITHDRAWAL SYNDROME NEONATAL [None]
  - NEONATAL DISORDER [None]
  - TREMOR NEONATAL [None]
  - VOMITING NEONATAL [None]
